FAERS Safety Report 6482561-4 (Version None)
Quarter: 2009Q4

REPORT INFORMATION
  Report Type: 
  Country: None (occurrence: None)
  Receive Date: 20091208
  Receipt Date: 20091024
  Transmission Date: 20100525
  Serious: No
  Sender: FDA-Public Use
  Company Number: US-AMGEN-TCS371138

PATIENT
  Sex: Female

DRUGS (2)
  1. ENBREL [Suspect]
     Indication: RHEUMATOID ARTHRITIS
     Route: 058
     Dates: start: 20070109
  2. ARAVA [Concomitant]

REACTIONS (5)
  - DIZZINESS [None]
  - EYE SWELLING [None]
  - INJECTION SITE PAIN [None]
  - MUSCULAR WEAKNESS [None]
  - OSTEOARTHRITIS [None]
